FAERS Safety Report 23189594 (Version 1)
Quarter: 2023Q4

REPORT INFORMATION
  Report Type: Spontaneous
  Country: US (occurrence: US)
  Receive Date: 20231116
  Receipt Date: 20231116
  Transmission Date: 20240109
  Serious: Yes (Hospitalization)
  Sender: FDA-Public Use
  Company Number: US-NOVITIUMPHARMA-2023USNVP01979

PATIENT
  Age: 48 Year
  Sex: Male

DRUGS (2)
  1. FLUOXETINE [Suspect]
     Active Substance: FLUOXETINE HYDROCHLORIDE
     Indication: Bipolar disorder
  2. CARVEDILOL [Concomitant]
     Active Substance: CARVEDILOL
     Indication: Hypertension

REACTIONS (1)
  - Drug interaction [Unknown]
